FAERS Safety Report 5852816-2 (Version None)
Quarter: 2008Q3

REPORT INFORMATION
  Report Type: 
  Country: None (occurrence: None)
  Receive Date: 20080821
  Receipt Date: 20080811
  Transmission Date: 20090109
  Serious: Yes (Other)
  Sender: FDA-Public Use
  Company Number: JP-BAYER-200811837BYL

PATIENT
  Age: 60 Year
  Sex: Male
  Weight: 73 kg

DRUGS (9)
  1. NEXAVAR [Suspect]
     Indication: RENAL CELL CARCINOMA STAGE IV
     Dosage: AS USED: 800 MG  UNIT DOSE: 200 MG
     Route: 048
     Dates: start: 20080502, end: 20080801
  2. OXYCONTIN [Concomitant]
     Dosage: AS USED: 100 MG
     Route: 048
     Dates: start: 20080502
  3. MAGMITT [Concomitant]
     Dosage: AS USED: 1980 MG  UNIT DOSE: 330 MG
     Route: 048
     Dates: start: 20080523
  4. LULLAN [Concomitant]
     Dosage: AS USED: 8 MG
     Route: 048
     Dates: start: 20080514
  5. AMOBAN [Concomitant]
     Dosage: TOTAL DAILY DOSE: 7.5 MG  UNIT DOSE: 7.5 MG
     Route: 048
     Dates: start: 20080611, end: 20080730
  6. GASTER D [Concomitant]
     Dosage: TOTAL DAILY DOSE: 20 MG  UNIT DOSE: 20 MG
     Route: 048
     Dates: start: 20080710
  7. BIOFERMIN [Concomitant]
     Dosage: AS USED: 3 G  UNIT DOSE: 1 G
     Route: 048
     Dates: start: 20080710
  8. DUROTEP [Concomitant]
     Dosage: TOTAL DAILY DOSE: 5 MG  UNIT DOSE: 5 MG
     Route: 062
     Dates: start: 20080728
  9. MYSLEE [Concomitant]
     Dosage: TOTAL DAILY DOSE: 5 MG  UNIT DOSE: 5 MG
     Route: 048
     Dates: start: 20080723

REACTIONS (3)
  - HEPATIC FUNCTION ABNORMAL [None]
  - MELAENA [None]
  - PALMAR-PLANTAR ERYTHRODYSAESTHESIA SYNDROME [None]
